FAERS Safety Report 6013429-5 (Version None)
Quarter: 2008Q4

REPORT INFORMATION
  Report Type: 
  Country: None (occurrence: None)
  Receive Date: 20081216
  Receipt Date: 20080306
  Transmission Date: 20090506
  Serious: Yes (Other)
  Sender: FDA-Public Use
  Company Number: US-WYE-H02986208

PATIENT
  Age: 60 Year
  Sex: Female
  Weight: 56.3 kg

DRUGS (3)
  1. EFFEXOR XR [Suspect]
     Indication: DEPRESSION
     Dosage: 75 MG 1X PER 1 DAY, ORAL
     Route: 048
     Dates: start: 20020101
  2. CITRACAL (CALCIUM CITRATE) [Concomitant]
  3. CENTRUM SILVER (MULTIVITAMIN/MULTIMINERAL) [Concomitant]

REACTIONS (4)
  - COUGH [None]
  - DISORIENTATION [None]
  - DYSPHONIA [None]
  - THROAT IRRITATION [None]
